FAERS Safety Report 6368740-5 (Version None)
Quarter: 2009Q3

REPORT INFORMATION
  Report Type: 
  Country: None (occurrence: None)
  Receive Date: 20090917
  Receipt Date: 20090917
  Transmission Date: 20100115
  Serious: No
  Sender: FDA-Public Use
  Company Number: None

PATIENT
  Age: 5 Year
  Sex: Male
  Weight: 22.6799 kg

DRUGS (1)
  1. TOPAMAX [Suspect]
     Dosage: (1) 25MG  2X DAILY MOUTH
     Route: 048
     Dates: start: 20090701

REACTIONS (1)
  - VOMITING [None]
